FAERS Safety Report 21766924 (Version 1)
Quarter: 2022Q4

REPORT INFORMATION
  Report Type: Spontaneous
  Country: CN (occurrence: CN)
  Receive Date: 20221222
  Receipt Date: 20221222
  Transmission Date: 20230112
  Serious: Yes (Other)
  Sender: FDA-Public Use
  Company Number: CN-PFIZER INC-PV202200122700

PATIENT
  Age: 67 Year
  Sex: Male

DRUGS (5)
  1. SOLU-MEDROL [Suspect]
     Active Substance: METHYLPREDNISOLONE SODIUM SUCCINATE
     Dosage: 200 MG, DAILY
  2. SOLU-MEDROL [Suspect]
     Active Substance: METHYLPREDNISOLONE SODIUM SUCCINATE
     Dosage: 160 MG, DAILY
  3. SOLU-MEDROL [Suspect]
     Active Substance: METHYLPREDNISOLONE SODIUM SUCCINATE
     Dosage: 120 MG, DAILY
  4. SOLU-MEDROL [Suspect]
     Active Substance: METHYLPREDNISOLONE SODIUM SUCCINATE
     Dosage: 80 MG, DAILY
  5. RABEPRAZOLE SODIUM [Concomitant]
     Active Substance: RABEPRAZOLE SODIUM
     Dosage: 20 MG, 2X/DAY

REACTIONS (5)
  - Blood pressure increased [Recovering/Resolving]
  - Hyponatraemia [Recovering/Resolving]
  - Blood albumin decreased [Recovering/Resolving]
  - Oedema peripheral [Recovering/Resolving]
  - Candida infection [Recovered/Resolved]

NARRATIVE: CASE EVENT DATE: 20200806
